FAERS Safety Report 7494447-7 (Version None)
Quarter: 2011Q2

REPORT INFORMATION
  Report Type: 
  Country: None (occurrence: None)
  Receive Date: 20110520
  Receipt Date: 20110512
  Transmission Date: 20111010
  Serious: Yes (Other)
  Sender: FDA-Public Use
  Company Number: JP-BRISTOL-MYERS SQUIBB COMPANY-15660004

PATIENT
  Age: 53 Year
  Sex: Female

DRUGS (1)
  1. TAXOL [Suspect]
     Indication: BREAST CANCER METASTATIC
     Dosage: INT AND RESTARTED ON SEP10 ONCE WEEKLY FOR 3WKS FOLLOWED BY 1WK INTERVAL
     Route: 042
     Dates: start: 20090101

REACTIONS (1)
  - VIITH NERVE PARALYSIS [None]
